FAERS Safety Report 6189435-7 (Version None)
Quarter: 2009Q2

REPORT INFORMATION
  Report Type: 
  Country: None (occurrence: None)
  Receive Date: 20090514
  Receipt Date: 20090512
  Transmission Date: 20091009
  Serious: Yes (Other)
  Sender: FDA-Public Use
  Company Number: US-ASTRAZENECA-2009UW05754

PATIENT
  Age: 62 Year
  Sex: Female
  Weight: 83.9 kg

DRUGS (11)
  1. PRILOSEC [Suspect]
     Indication: GASTROOESOPHAGEAL REFLUX DISEASE
     Route: 048
     Dates: start: 20090113, end: 20090120
  2. PRILOSEC [Suspect]
     Indication: PROPHYLAXIS
     Route: 048
     Dates: start: 20090113, end: 20090120
  3. SYNTHROID [Concomitant]
  4. PREDNISONE [Concomitant]
  5. SEREVENT [Concomitant]
     Dosage: BID, 50 MCG
     Route: 055
  6. ELAVIL [Concomitant]
     Dosage: 20 MG QAM AND 30 QHS
  7. XOPENEX [Concomitant]
     Dosage: PRN
  8. NIACIN [Concomitant]
     Dosage: 500 MG, EXTENDED RELEASE TABLET
  9. POTASSIUM CHLORIDE [Concomitant]
  10. VITAMIN B COMPLEX CAP [Concomitant]
  11. DOXEPIN HCL [Concomitant]
     Dosage: 25 MG
     Route: 048

REACTIONS (4)
  - DIZZINESS [None]
  - HEADACHE [None]
  - OPTIC ISCHAEMIC NEUROPATHY [None]
  - SOMNOLENCE [None]
